FAERS Safety Report 11069440 (Version 1)
Quarter: 2015Q2

REPORT INFORMATION
  Report Type: Spontaneous
  Country: JP (occurrence: JP)
  Receive Date: 20150427
  Receipt Date: 20150427
  Transmission Date: 20150821
  Serious: Yes (Other)
  Sender: FDA-Public Use
  Company Number: JP-ASTRAZENECA-2015SE37518

PATIENT
  Age: 56 Year
  Sex: Male

DRUGS (1)
  1. ANAPEINE [Suspect]
     Active Substance: ROPIVACAINE HYDROCHLORIDE
     Indication: EPIDURAL ANAESTHESIA
     Dosage: 7.5 MG/ML 10 CC, FOLLOWED BY CONTINUOUS ADMINISTRATION AT THE DOSE OF 2 MG/ML
     Route: 008

REACTIONS (2)
  - Diplegia [Unknown]
  - Paresis [Unknown]
